FAERS Safety Report 7597944-9 (Version None)
Quarter: 2011Q3

REPORT INFORMATION
  Report Type: 
  Country: None (occurrence: None)
  Receive Date: 20110708
  Receipt Date: 20110623
  Transmission Date: 20111222
  Serious: Yes (Other)
  Sender: FDA-Public Use
  Company Number: JP-GENENTECH-305825

PATIENT
  Sex: Male
  Weight: 69 kg

DRUGS (8)
  1. LUCENTIS [Suspect]
     Dosage: 0.05 ML, UNK
     Route: 031
     Dates: start: 20090525
  2. LUCENTIS [Suspect]
     Dosage: 0.05 ML, UNK
     Route: 031
     Dates: start: 20100512
  3. LUCENTIS [Suspect]
     Dosage: 0.05 ML, UNK
     Route: 031
     Dates: start: 20090706
  4. LUCENTIS [Suspect]
     Dosage: 0.05 ML, UNK
     Route: 031
     Dates: start: 20100305
  5. LUCENTIS [Suspect]
     Indication: AGE-RELATED MACULAR DEGENERATION
     Dosage: 0.05 ML, UNK
     Route: 031
     Dates: start: 20090411
  6. LUCENTIS [Suspect]
     Dosage: 0.05 ML, UNK
     Route: 031
     Dates: start: 20100409
  7. LUCENTIS [Suspect]
     Dosage: 0.05 ML, UNK
     Route: 031
     Dates: start: 20090825
  8. GATIFLOXACIN [Concomitant]
     Indication: PRODUCT USED FOR UNKNOWN INDICATION
     Dosage: UNK
     Dates: start: 20090401, end: 20100301

REACTIONS (4)
  - AGE-RELATED MACULAR DEGENERATION [None]
  - DRUG INEFFECTIVE [None]
  - RETINAL SCAR [None]
  - RETINAL HAEMORRHAGE [None]
